FAERS Safety Report 5086133-8 (Version None)
Quarter: 2006Q3

REPORT INFORMATION
  Report Type: 
  Country: None (occurrence: None)
  Receive Date: 20060818
  Receipt Date: 20060807
  Transmission Date: 20061208
  Serious: Yes (Hospitalization)
  Sender: FDA-Public Use
  Company Number: 2006018180

PATIENT
  Age: 61 Year
  Sex: Male
  Weight: 57.4 kg

DRUGS (7)
  1. SUTENT [Suspect]
     Indication: GASTROINTESTINAL STROMAL TUMOUR
     Dosage: 50 MG (50 MG, 1 IN 1 D), ORAL
     Route: 048
     Dates: start: 20050826
  2. INSULIN HUMAN (INSULIN HUMAN) [Concomitant]
  3. DIMETICONE (DIMETICONE) [Concomitant]
  4. AZULENE (AZULENE) [Concomitant]
  5. GLUTAMINE (LEVOGLUTAMIDE) [Concomitant]
  6. ALBUMIN                     (ALBUMIN NORMAL HUMAN SERUM) [Concomitant]
  7. ASPARTATE CALCIUM              (ASPARTATE CALCIUM) [Concomitant]

REACTIONS (11)
  - ABDOMINAL PAIN [None]
  - ASPARTATE AMINOTRANSFERASE INCREASED [None]
  - BLOOD ALKALINE PHOSPHATASE INCREASED [None]
  - BLOOD AMYLASE INCREASED [None]
  - DISCOMFORT [None]
  - DISEASE PROGRESSION [None]
  - GAMMA-GLUTAMYLTRANSFERASE INCREASED [None]
  - GASTRITIS [None]
  - HYPOPROTEINAEMIA [None]
  - NEPHROTIC SYNDROME [None]
  - WEIGHT INCREASED [None]
